FAERS Safety Report 7293192-0 (Version None)
Quarter: 2011Q1

REPORT INFORMATION
  Report Type: 
  Country: None (occurrence: None)
  Receive Date: 20110215
  Receipt Date: 20110209
  Transmission Date: 20110831
  Serious: Yes (Other)
  Sender: FDA-Public Use
  Company Number: JP-PFIZER INC-2011028524

PATIENT
  Age: 22 Month
  Sex: Male
  Weight: 2.545 kg

DRUGS (2)
  1. BERAPROST [Suspect]
     Dosage: UNK
  2. REVATIO [Suspect]
     Dosage: UNK
     Route: 048

REACTIONS (1)
  - INTERSTITIAL LUNG DISEASE [None]
